FAERS Safety Report 11882313 (Version 2)
Quarter: 2016Q1

REPORT INFORMATION
  Report Type: Other
  Country: KR (occurrence: KR)
  Receive Date: 20151231
  Receipt Date: 20160315
  Transmission Date: 20160526
  Serious: Yes (Other)
  Sender: FDA-Public Use
  Company Number: KR-LUPIN PHARMACEUTICALS INC.-2015-04458

PATIENT
  Age: 74 Year
  Sex: Female

DRUGS (5)
  1. BUPROPION. [Suspect]
     Active Substance: BUPROPION
     Indication: PRODUCT USED FOR UNKNOWN INDICATION
     Dosage: 300MG
     Route: 065
  2. IMIPRAMINE [Suspect]
     Active Substance: IMIPRAMINE
     Indication: PRODUCT USED FOR UNKNOWN INDICATION
     Dosage: 12.5MG
     Route: 065
  3. TIANEPTINE [Suspect]
     Active Substance: TIANEPTINE
     Indication: PRODUCT USED FOR UNKNOWN INDICATION
     Dosage: 12.5MG
     Route: 065
  4. ALPRAZOLAM. [Suspect]
     Active Substance: ALPRAZOLAM
     Indication: PRODUCT USED FOR UNKNOWN INDICATION
     Dosage: 0.25MG
     Route: 065
  5. DIAZEPAM. [Suspect]
     Active Substance: DIAZEPAM
     Indication: PRODUCT USED FOR UNKNOWN INDICATION
     Dosage: 2MG
     Route: 065

REACTIONS (1)
  - Parkinsonism [Recovered/Resolved]
